FAERS Safety Report 9972390 (Version 1)
Quarter: 2014Q1

REPORT INFORMATION
  Report Type: Report from Study
  Country: US (occurrence: US)
  Receive Date: 20140306
  Receipt Date: 20140306
  Transmission Date: 20141002
  Serious: No
  Sender: FDA-Public Use
  Company Number: US-ABBVIE-13P-163-1153854-00

PATIENT
  Age: 66 Year
  Sex: Female
  Weight: 79.9 kg

DRUGS (13)
  1. HUMIRA [Suspect]
     Indication: PSORIATIC ARTHROPATHY
     Dates: start: 201206, end: 201303
  2. HUMIRA [Suspect]
     Indication: PSORIASIS
     Dates: start: 201306, end: 20130914
  3. HUMIRA [Suspect]
     Dates: start: 20130915
  4. ESCITALOPRAM [Concomitant]
     Indication: DEPRESSION
  5. URSODIOL [Concomitant]
     Indication: BILIARY CIRRHOSIS PRIMARY
  6. METFORMIN [Concomitant]
     Indication: DIABETES MELLITUS
  7. AMYTRIPTYLINE [Concomitant]
     Indication: DEPRESSION
  8. KLOR-CON [Concomitant]
     Indication: HYPOKALAEMIA
  9. METOLAZONE [Concomitant]
     Indication: FLUID RETENTION
  10. VITAMIN D [Concomitant]
     Indication: VITAMIN D DEFICIENCY
  11. GLIPIZIDE [Concomitant]
     Indication: DIABETES MELLITUS
  12. CALCIUM [Concomitant]
     Indication: VITAMIN SUPPLEMENTATION
  13. OMEPRAZOLE [Concomitant]
     Indication: GASTROOESOPHAGEAL REFLUX DISEASE

REACTIONS (2)
  - Skin exfoliation [Not Recovered/Not Resolved]
  - Rash [Not Recovered/Not Resolved]
